FAERS Safety Report 6969912-9 (Version None)
Quarter: 2010Q3

REPORT INFORMATION
  Report Type: 
  Country: None (occurrence: None)
  Receive Date: 20100908
  Receipt Date: 20100827
  Transmission Date: 20110219
  Serious: Yes (Hospitalization, Other)
  Sender: FDA-Public Use
  Company Number: US-RB-009575-10

PATIENT
  Age: 30 Year
  Sex: Male

DRUGS (1)
  1. SUBOXONE [Suspect]
     Indication: DRUG DEPENDENCE
     Route: 060
     Dates: start: 20091101

REACTIONS (5)
  - DIZZINESS [None]
  - NASAL CONGESTION [None]
  - NASOPHARYNGITIS [None]
  - PAIN [None]
  - PNEUMOTHORAX [None]
